FAERS Safety Report 11883625 (Version 2)
Quarter: 2016Q1

REPORT INFORMATION
  Report Type: Spontaneous
  Country: US (occurrence: US)
  Receive Date: 20160101
  Receipt Date: 20160119
  Transmission Date: 20160526
  Serious: No
  Sender: FDA-Public Use
  Company Number: US-AMGEN-USASP2015138269

PATIENT
  Age: 48 Year
  Sex: Male

DRUGS (1)
  1. ENBREL [Suspect]
     Active Substance: ETANERCEPT
     Indication: PSORIASIS
     Dosage: UNK UNK, QWK
     Route: 065

REACTIONS (5)
  - Device issue [Unknown]
  - Injection site pain [Unknown]
  - Drug dose omission [Unknown]
  - Emotional distress [Unknown]
  - Underdose [Unknown]

NARRATIVE: CASE EVENT DATE: 20151217
